FAERS Safety Report 4595688-9 (Version None)
Quarter: 2005Q1

REPORT INFORMATION
  Report Type: 
  Country: None (occurrence: None)
  Receive Date: 20050224
  Receipt Date: 20050208
  Transmission Date: 20050727
  Serious: No
  Sender: FDA-Public Use
  Company Number: 10236

PATIENT
  Age: 73 Year
  Sex: Female

DRUGS (16)
  1. AMIODARONE [Suspect]
     Indication: ATRIAL FIBRILLATION
     Dosage: IV
     Route: 042
  2. ACETYLSALICYLIC ACID [Concomitant]
  3. PRAVASTATIN [Concomitant]
  4. ATENOLOL [Concomitant]
  5. PROPOFOL [Concomitant]
  6. PHENYTOIN [Concomitant]
  7. INSULIN [Concomitant]
  8. HEPARIN [Concomitant]
  9. FUROSEMIDE [Concomitant]
  10. ACETAMINOPHEN [Concomitant]
  11. PROPRANOLOL [Concomitant]
  12. PHENPROCOUMON [Concomitant]
  13. MORPHINE [Concomitant]
  14. AMLODIPINE [Concomitant]
  15. GLYBURIDE [Concomitant]
  16. ALLOPURINOL [Concomitant]

REACTIONS (3)
  - HEPATOCELLULAR DAMAGE [None]
  - HEPATOTOXICITY [None]
  - POST PROCEDURAL COMPLICATION [None]
